FAERS Safety Report 5577010-4 (Version None)
Quarter: 2007Q4

REPORT INFORMATION
  Report Type: 
  Country: None (occurrence: None)
  Receive Date: 20071228
  Receipt Date: 20071219
  Transmission Date: 20080405
  Serious: Yes (Hospitalization)
  Sender: FDA-Public Use
  Company Number: JP-ABBOTT-04P-087-0254739-00

PATIENT
  Sex: Female

DRUGS (77)
  1. NORVIR [Suspect]
     Indication: HIV INFECTION
     Route: 048
     Dates: start: 20000310, end: 20001027
  2. KALETRA [Suspect]
     Indication: HIV INFECTION
     Route: 048
     Dates: start: 20010130, end: 20061115
  3. CLARITHROMYCIN [Suspect]
     Indication: MYCOBACTERIUM AVIUM COMPLEX INFECTION
     Route: 048
     Dates: start: 20011028
  4. CLARITHROMYCIN [Suspect]
     Indication: GENERAL SYMPTOM
     Route: 048
     Dates: start: 19981008, end: 19981201
  5. KALETRA [Suspect]
     Indication: HIV INFECTION
     Route: 048
     Dates: start: 20061116
  6. INDINIVIR SULFATE [Suspect]
     Indication: HIV INFECTION
     Route: 048
     Dates: start: 19980831, end: 20001027
  7. INDINIVIR SULFATE [Suspect]
     Route: 048
     Dates: start: 20000310, end: 20001027
  8. NELFINAVIR [Suspect]
     Indication: HIV INFECTION
     Route: 048
     Dates: start: 19980910, end: 19981118
  9. NELFINAVIR [Suspect]
     Route: 048
     Dates: start: 19990223, end: 19991216
  10. EFAVIRENZ [Suspect]
     Indication: HIV INFECTION
     Route: 048
     Dates: start: 20000310
  11. EFAVIRENZ [Suspect]
     Dates: start: 20010130
  12. GANCICLOVIR [Suspect]
     Indication: CYTOMEGALOVIRUS INFECTION
     Route: 050
     Dates: start: 20000215, end: 20000306
  13. GANCICLOVIR [Suspect]
     Route: 050
     Dates: start: 20000307, end: 20000402
  14. GANCICLOVIR [Suspect]
     Route: 050
     Dates: start: 20000403, end: 20000424
  15. GANCICLOVIR [Suspect]
     Dates: start: 20000425, end: 20000426
  16. BACTRIM [Suspect]
     Indication: PROPHYLAXIS
     Route: 048
     Dates: start: 20001219, end: 20001219
  17. BACTRIM [Suspect]
     Indication: HYPERSENSITIVITY
     Dates: start: 20001220, end: 20001220
  18. BACTRIM [Suspect]
     Dates: start: 20001221, end: 20001221
  19. BACTRIM [Suspect]
     Dates: start: 20001222, end: 20001222
  20. BACTRIM [Suspect]
     Dates: start: 20001223, end: 20001223
  21. ETHAMBUTOL HCL [Suspect]
     Indication: MYCOBACTERIUM AVIUM COMPLEX INFECTION
     Dates: start: 20001028, end: 20011130
  22. ETHAMBUTOL HCL [Suspect]
     Dates: start: 20001028, end: 20011130
  23. ETHAMBUTOL HCL [Suspect]
     Dates: start: 19981025, end: 19981201
  24. ETHAMBUTOL HCL [Suspect]
     Dates: start: 19981212, end: 19990614
  25. FOSCARNET SODIUM [Suspect]
     Indication: CYTOMEGALOVIRUS INFECTION
     Route: 050
     Dates: start: 20000125, end: 20000214
  26. FOSCARNET SODIUM [Suspect]
     Dates: start: 20000215, end: 20000303
  27. FOSCARNET SODIUM [Suspect]
     Dates: start: 20000404, end: 20000406
  28. FOSCARNET SODIUM [Suspect]
     Dates: start: 20000407, end: 20000426
  29. ABACAVIR SULFATE [Suspect]
     Indication: HIV INFECTION
     Route: 048
     Dates: start: 20010130
  30. ZIDOVUDINE [Concomitant]
     Indication: HIV INFECTION
     Route: 048
     Dates: start: 19980831, end: 19980909
  31. ZIDOVUDINE [Concomitant]
     Dates: start: 19991119, end: 19991216
  32. ZIDOVUDINE [Concomitant]
     Dates: start: 20000831, end: 20000909
  33. LAMIVUDINE [Concomitant]
     Indication: HIV INFECTION
     Route: 048
     Dates: start: 19980831, end: 19981118
  34. LAMIVUDINE [Concomitant]
     Dates: start: 19990223, end: 19991216
  35. LAMIVUDINE [Concomitant]
     Dates: start: 20000831, end: 20001118
  36. STAVUDINE [Concomitant]
     Indication: HIV INFECTION
     Route: 048
     Dates: start: 19980910, end: 19981118
  37. STAVUDINE [Concomitant]
     Dates: start: 19990223, end: 19991118
  38. RIFABUTIN [Concomitant]
     Indication: MYCOBACTERIUM AVIUM COMPLEX INFECTION
     Route: 048
     Dates: start: 19980923, end: 19981021
  39. RIFABUTIN [Concomitant]
     Dates: start: 20001028, end: 20010213
  40. AMIKACIN SULFATE [Concomitant]
     Indication: DRUG USE FOR UNKNOWN INDICATION
     Route: 050
     Dates: start: 19980922, end: 19981009
  41. AMIKACIN SULFATE [Concomitant]
     Route: 050
     Dates: start: 19981114, end: 19981117
  42. AMIKACIN SULFATE [Concomitant]
     Route: 050
     Dates: start: 19981118, end: 19981217
  43. AMIKACIN SULFATE [Concomitant]
     Route: 050
     Dates: start: 19981214, end: 19990408
  44. AMIKACIN SULFATE [Concomitant]
     Route: 050
     Dates: start: 20001028, end: 20001108
  45. AZITHROMYCIN HYDRATE [Concomitant]
     Indication: DRUG USE FOR UNKNOWN INDICATION
     Dates: start: 19981210, end: 19990715
  46. SPARFLOXACIN [Concomitant]
     Indication: DRUG USE FOR UNKNOWN INDICATION
     Dates: start: 19981216, end: 19991115
  47. ROXITHROMYCIN [Concomitant]
     Indication: DRUG USE FOR UNKNOWN INDICATION
     Dates: start: 19990705, end: 19991115
  48. ROXITHROMYCIN [Concomitant]
     Dates: start: 20000131, end: 20001027
  49. PENTAMIDINE ISETHIONATE [Concomitant]
     Indication: ANTIFUNGAL PROPHYLAXIS
     Route: 050
     Dates: start: 19980918, end: 19990331
  50. PENTAMIDINE ISETHIONATE [Concomitant]
     Dates: start: 19990430, end: 20000104
  51. SODIUM CHLORIDE 0.9% [Concomitant]
     Indication: DRUG USE FOR UNKNOWN INDICATION
     Dates: start: 19980918, end: 19990331
  52. SODIUM CHLORIDE 0.9% [Concomitant]
     Dates: start: 20000125, end: 20000214
  53. SODIUM CHLORIDE 0.9% [Concomitant]
     Dates: start: 20000215, end: 20000303
  54. SODIUM CHLORIDE 0.9% [Concomitant]
     Dates: start: 20000404, end: 20000426
  55. PREDNISOLONE [Concomitant]
     Indication: DRUG USE FOR UNKNOWN INDICATION
     Dates: start: 19980928, end: 20000321
  56. HYDROCORTISONE SODIUM PHOSPHATE [Concomitant]
     Indication: DRUG USE FOR UNKNOWN INDICATION
     Dates: start: 19980502, end: 19980530
  57. HYDROCORTISONE SODIUM PHOSPHATE [Concomitant]
     Dates: start: 20000322, end: 20000406
  58. HYDROCORTISONE SODIUM PHOSPHATE [Concomitant]
     Dates: start: 20000407
  59. MORPHINE SULFATE [Concomitant]
     Indication: DRUG USE FOR UNKNOWN INDICATION
     Dates: start: 19991108, end: 19991129
  60. MORPHINE SULFATE [Concomitant]
     Dates: start: 19991130, end: 19991205
  61. MORPHINE SULFATE [Concomitant]
     Dates: start: 19991206, end: 20000101
  62. ATOVAQUONE [Concomitant]
     Indication: DRUG USE FOR UNKNOWN INDICATION
     Dates: start: 20000105, end: 20000125
  63. ATOVAQUONE [Concomitant]
     Dates: start: 20000126, end: 20000126
  64. ATOVAQUONE [Concomitant]
     Dates: start: 20001214, end: 20001222
  65. HYDROCORTISONE [Concomitant]
     Indication: DRUG USE FOR UNKNOWN INDICATION
     Dates: start: 20000407, end: 20001027
  66. HYDROCORTISONE [Concomitant]
     Dates: start: 20001029, end: 20011002
  67. HYDROCORTISONE [Concomitant]
     Dates: start: 20021003
  68. IV FLUID [Concomitant]
     Indication: DRUG USE FOR UNKNOWN INDICATION
     Route: 042
     Dates: start: 20000125, end: 20000303
  69. IV FLUID [Concomitant]
     Dates: start: 20010202, end: 20010207
  70. HYDROXYZINE EMBONATE [Concomitant]
     Indication: DRUG USE FOR UNKNOWN INDICATION
     Dates: start: 20000102, end: 20000501
  71. HYDROXYZINE EMBONATE [Concomitant]
     Dates: start: 19991130, end: 19991224
  72. MORPHINE HCL ELIXIR [Concomitant]
     Indication: DRUG USE FOR UNKNOWN INDICATION
     Dates: start: 20000102, end: 20000501
  73. MORPHINE HCL ELIXIR [Concomitant]
     Dates: start: 20000113
  74. GLUCOSE [Concomitant]
     Indication: DRUG USE FOR UNKNOWN INDICATION
     Dates: start: 20000102, end: 20000501
  75. CIPROFLOXACIN [Concomitant]
     Indication: DRUG USE FOR UNKNOWN INDICATION
     Dates: start: 20001119, end: 20020220
  76. DEXTROSE [Concomitant]
     Indication: DRUG USE FOR UNKNOWN INDICATION
     Dates: start: 20000102, end: 20000301
  77. HYDROXYZINE [Concomitant]
     Indication: DRUG USE FOR UNKNOWN INDICATION
     Dates: start: 20000102, end: 20000501

REACTIONS (11)
  - BLOOD ALKALINE PHOSPHATASE INCREASED [None]
  - BLOOD ELECTROLYTES ABNORMAL [None]
  - CALCULUS URINARY [None]
  - CREATININE RENAL CLEARANCE DECREASED [None]
  - DIZZINESS [None]
  - GAMMA-GLUTAMYLTRANSFERASE INCREASED [None]
  - HIV WASTING SYNDROME [None]
  - HYPERLIPIDAEMIA [None]
  - NAUSEA [None]
  - PNEUMOCYSTIS JIROVECI PNEUMONIA [None]
  - VOMITING [None]
